FAERS Safety Report 6377411-0 (Version None)
Quarter: 2009Q3

REPORT INFORMATION
  Report Type: 
  Country: None (occurrence: None)
  Receive Date: 20090925
  Receipt Date: 20090924
  Transmission Date: 20100115
  Serious: Yes (Death)
  Sender: FDA-Public Use
  Company Number: DE-JNJFOC-20090907002

PATIENT
  Age: 87 Year
  Sex: Male

DRUGS (4)
  1. DURAGESIC-100 [Suspect]
     Indication: BACK PAIN
     Route: 062
  2. NORVASC [Concomitant]
     Route: 065
  3. RAMIPRIL [Concomitant]
     Route: 065
  4. BELOC ZOK [Concomitant]
     Route: 065

REACTIONS (4)
  - DEATH [None]
  - FATIGUE [None]
  - SOMNOLENCE [None]
  - WRONG TECHNIQUE IN DRUG USAGE PROCESS [None]
